FAERS Safety Report 7742688-3 (Version None)
Quarter: 2011Q3

REPORT INFORMATION
  Report Type: 
  Country: None (occurrence: None)
  Receive Date: 20110912
  Receipt Date: 20110901
  Transmission Date: 20111222
  Serious: Yes (Other)
  Sender: FDA-Public Use
  Company Number: CA-JNJFOC-20110901919

PATIENT
  Sex: Female
  Weight: 72 kg

DRUGS (3)
  1. REMICADE [Suspect]
     Route: 042
  2. REMICADE [Suspect]
     Indication: CROHN'S DISEASE
     Route: 042
     Dates: start: 20100426
  3. REMICADE [Suspect]
     Route: 042
     Dates: start: 20110901

REACTIONS (1)
  - POUCHITIS [None]
